FAERS Safety Report 10205904 (Version 1)
Quarter: 2014Q2

REPORT INFORMATION
  Report Type: Spontaneous
  Country: PH (occurrence: PH)
  Receive Date: 20140530
  Receipt Date: 20140530
  Transmission Date: 20141212
  Serious: Yes (Hospitalization, Disabling, Other)
  Sender: FDA-Public Use
  Company Number: PH-009507513-1405PHL013995

PATIENT
  Age: 77 Year
  Sex: Female

DRUGS (1)
  1. FOSAVANCE [Suspect]
     Indication: OSTEOPOROSIS PROPHYLAXIS
     Dosage: 1 TABLET, ^5600^, ONCE A WEEK
     Route: 048
     Dates: start: 2012, end: 201401

REACTIONS (5)
  - Open reduction of fracture [Unknown]
  - Femur fracture [Unknown]
  - Fall [Unknown]
  - Ligament sprain [Unknown]
  - Drug ineffective [Unknown]
